FAERS Safety Report 8529732-0 (Version None)
Quarter: 2012Q3

REPORT INFORMATION
  Report Type: 
  Country: None (occurrence: None)
  Receive Date: 20120723
  Receipt Date: 20120712
  Transmission Date: 20120928
  Serious: Yes (Hospitalization)
  Sender: FDA-Public Use
  Company Number: US-JNJFOC-20120706911

PATIENT
  Sex: Male
  Weight: 112.95 kg

DRUGS (7)
  1. INVEGA SUSTENNA [Suspect]
     Indication: HALLUCINATION, AUDITORY
     Route: 030
     Dates: start: 20110201
  2. INVEGA SUSTENNA [Suspect]
     Indication: UNEVALUABLE EVENT
     Route: 030
     Dates: start: 20110201
  3. KLONOPIN [Concomitant]
     Indication: SEDATIVE THERAPY
     Route: 048
  4. ALCOHOL [Suspect]
     Indication: PRODUCT USED FOR UNKNOWN INDICATION
     Route: 065
  5. BUSPAR [Concomitant]
     Route: 048
  6. DEPAKOTE [Concomitant]
     Route: 048
  7. ARTANE [Concomitant]
     Route: 048

REACTIONS (2)
  - PANCREATITIS [None]
  - BREAST ENLARGEMENT [None]
